FAERS Safety Report 14002847 (Version 1)
Quarter: 2017Q3

REPORT INFORMATION
  Report Type: Spontaneous
  Country: US (occurrence: US)
  Receive Date: 20170922
  Receipt Date: 20170922
  Transmission Date: 20171128
  Serious: No
  Sender: FDA-Public Use
  Company Number: US-AMGEN-USASP2017096866

PATIENT
  Age: 79 Year
  Sex: Female

DRUGS (1)
  1. NEUPOGEN [Suspect]
     Active Substance: FILGRASTIM
     Indication: MYELODYSPLASTIC SYNDROME
     Dosage: 300 MUG, QD (FOR 9 DAYS)
     Route: 058

REACTIONS (1)
  - Off label use [Unknown]
